FAERS Safety Report 9274251 (Version 1)
Quarter: 2013Q2

REPORT INFORMATION
  Report Type: Spontaneous
  Country: US (occurrence: US)
  Receive Date: 20130506
  Receipt Date: 20130506
  Transmission Date: 20140414
  Serious: No
  Sender: FDA-Public Use
  Company Number: US-AMGEN-USASP2013005421

PATIENT
  Age: 55 Year
  Sex: Female

DRUGS (5)
  1. ENBREL [Suspect]
     Indication: RHEUMATOID ARTHRITIS
     Dosage: 25 MG, 2 TIMES/WK
     Dates: start: 19980101, end: 201303
  2. ENBREL [Suspect]
  3. ENBREL [Suspect]
  4. METHOTREXATE [Concomitant]
     Dosage: 15 UNK, UNK
  5. METHOTREXATE [Concomitant]

REACTIONS (11)
  - Local swelling [Not Recovered/Not Resolved]
  - Skin discolouration [Unknown]
  - Erythema [Not Recovered/Not Resolved]
  - Dry eye [Not Recovered/Not Resolved]
  - Foreign body sensation in eyes [Not Recovered/Not Resolved]
  - Arthralgia [Not Recovered/Not Resolved]
  - Musculoskeletal pain [Not Recovered/Not Resolved]
  - Swelling face [Recovered/Resolved]
  - Erythema [Recovered/Resolved]
  - Hypertension [Not Recovered/Not Resolved]
  - Visual impairment [Not Recovered/Not Resolved]
